FAERS Safety Report 13064225 (Version 1)
Quarter: 2016Q4

REPORT INFORMATION
  Report Type: Spontaneous
  Country: US (occurrence: US)
  Receive Date: 20161227
  Receipt Date: 20161227
  Transmission Date: 20170207
  Serious: Yes (Other)
  Sender: FDA-Public Use
  Company Number: PHEH2016US033758

PATIENT
  Sex: Female

DRUGS (1)
  1. ZOFRAN [Suspect]
     Active Substance: ONDANSETRON HYDROCHLORIDE
     Indication: VOMITING IN PREGNANCY
     Dosage: 1 DF, QD
     Route: 048

REACTIONS (4)
  - Maternal exposure during pregnancy [Unknown]
  - Normal newborn [Unknown]
  - Oligohydramnios [Unknown]
  - Product use issue [Unknown]
